FAERS Safety Report 8364896-3 (Version None)
Quarter: 2012Q2

REPORT INFORMATION
  Report Type: 
  Country: None (occurrence: None)
  Receive Date: 20120516
  Receipt Date: 20120224
  Transmission Date: 20120825
  Serious: Yes (Other)
  Sender: FDA-Public Use
  Company Number: US-ROCHE-1043173

PATIENT
  Age: 82 Year
  Sex: Female

DRUGS (1)
  1. ZELBORAF [Suspect]
     Indication: MALIGNANT MELANOMA
     Dosage: 2 IN THE MORNING AND 2 IN THE EVENING
     Route: 048

REACTIONS (3)
  - CROHN'S DISEASE [None]
  - DIARRHOEA [None]
  - DYSPEPSIA [None]
